FAERS Safety Report 15303369 (Version 4)
Quarter: 2020Q1

REPORT INFORMATION
  Report Type: Spontaneous
  Country: US (occurrence: US)
  Receive Date: 20180821
  Receipt Date: 20200302
  Transmission Date: 20200409
  Serious: No
  Sender: FDA-Public Use
  Company Number: US-AMGEN INC.-USASP2018109810

PATIENT
  Age: 40 Year
  Sex: Female

DRUGS (4)
  1. IBUPROFEN. [Concomitant]
     Active Substance: IBUPROFEN
     Dosage: 800 MILLIGRAM
     Dates: start: 20180729
  2. AIMOVIG [Suspect]
     Active Substance: ERENUMAB-AOOE
     Indication: MIGRAINE
     Dosage: 140 MILLIGRAM, QMO (2 X 70 MG)
     Route: 058
     Dates: start: 20180628, end: 201902
  3. AIMOVIG [Suspect]
     Active Substance: ERENUMAB-AOOE
     Indication: HEMIPLEGIC MIGRAINE
     Dosage: 140 MILLIGRAM, QMO (2 X 70 MG)
     Route: 058
     Dates: start: 2019
  4. VIMPAT [Suspect]
     Active Substance: LACOSAMIDE
     Indication: HEMIPLEGIC MIGRAINE
     Dosage: UNK
     Route: 065

REACTIONS (7)
  - Therapeutic response shortened [Unknown]
  - Heart rate irregular [Unknown]
  - Fatigue [Unknown]
  - Back pain [Recovered/Resolved]
  - Sinus tachycardia [Unknown]
  - Heart rate increased [Unknown]
  - Constipation [Unknown]

NARRATIVE: CASE EVENT DATE: 2018
